FAERS Safety Report 7543328-9 (Version None)
Quarter: 2011Q2

REPORT INFORMATION
  Report Type: 
  Country: None (occurrence: None)
  Receive Date: 20110524
  Receipt Date: 20110311
  Transmission Date: 20111010
  Serious: No
  Sender: FDA-Public Use
  Company Number: 021767

PATIENT
  Sex: Female

DRUGS (1)
  1. CIMZIA [Suspect]
     Indication: CROHN'S DISEASE
     Dosage: SUBCUTANEOUS
     Route: 058
     Dates: start: 20100520

REACTIONS (6)
  - ANAEMIA [None]
  - DRUG EFFECT DECREASED [None]
  - ABDOMINAL PAIN [None]
  - FISTULA [None]
  - ABSCESS [None]
  - BODY TEMPERATURE INCREASED [None]
